FAERS Safety Report 7043815-6 (Version None)
Quarter: 2010Q4

REPORT INFORMATION
  Report Type: 
  Country: None (occurrence: None)
  Receive Date: 20101012
  Receipt Date: 20101012
  Transmission Date: 20110411
  Serious: Yes (Other)
  Sender: FDA-Public Use
  Company Number: None

PATIENT
  Age: 51 Year
  Sex: Female
  Weight: 85.7298 kg

DRUGS (1)
  1. AMITIZA [Suspect]
     Indication: IRRITABLE BOWEL SYNDROME
     Dosage: 24 MCG ONCE PO
     Route: 048
     Dates: start: 20101007, end: 20101008

REACTIONS (3)
  - COUGH [None]
  - DIARRHOEA [None]
  - THROAT TIGHTNESS [None]
